FAERS Safety Report 16186840 (Version 2)
Quarter: 2019Q2

REPORT INFORMATION
  Report Type: Spontaneous
  Country: US (occurrence: US)
  Receive Date: 20190411
  Receipt Date: 20190617
  Transmission Date: 20190711
  Serious: Yes (Other)
  Sender: FDA-Public Use
  Company Number: US-PFIZER INC-2019153402

PATIENT
  Age: 49 Year
  Sex: Male
  Weight: 81.65 kg

DRUGS (7)
  1. GABAPENTIN. [Suspect]
     Active Substance: GABAPENTIN
     Dosage: 600 MG, 3X/DAY (2 PILLS THREE TIMES A DAY)
     Dates: start: 201903, end: 201903
  2. GABAPENTIN. [Suspect]
     Active Substance: GABAPENTIN
     Indication: RADICULAR PAIN
     Dosage: 300 MG, 1X/DAY (ONE IN THE MORNING)
     Dates: start: 201903, end: 201903
  3. ADVIL [IBUPROFEN] [Concomitant]
     Active Substance: IBUPROFEN
     Indication: PAIN
     Dosage: UNK (2 TABLETS)
  4. ADVIL [IBUPROFEN] [Concomitant]
     Active Substance: IBUPROFEN
     Indication: ARTHRALGIA
     Dosage: UNK (TOTAL 6 TABLETS PER DAY ON MONDAY TO THURSDAY)
  5. GABAPENTIN. [Suspect]
     Active Substance: GABAPENTIN
     Dosage: 300 MG, 3X/DAY
     Route: 048
     Dates: start: 20190322, end: 20190401
  6. GABAPENTIN. [Suspect]
     Active Substance: GABAPENTIN
     Dosage: 900 MG, 3X/DAY (3 PILLS THREE TIMES A DAY)
     Dates: start: 20190329
  7. ADVIL [IBUPROFEN] [Concomitant]
     Active Substance: IBUPROFEN
     Indication: BACK PAIN
     Dosage: UNK (TOTAL 4 TABLETS PER DAY ON FRIDAY AND SATURDAY)

REACTIONS (9)
  - Feeling abnormal [Unknown]
  - Hypersensitivity [Unknown]
  - Feeling drunk [Unknown]
  - Somnolence [Unknown]
  - Mental impairment [Unknown]
  - Anger [Unknown]
  - Anxiety [Unknown]
  - Contraindicated product prescribed [Unknown]
  - Irritability [Recovered/Resolved]

NARRATIVE: CASE EVENT DATE: 201903
